FAERS Safety Report 7248016-4 (Version None)
Quarter: 2011Q1

REPORT INFORMATION
  Report Type: 
  Country: None (occurrence: None)
  Receive Date: 20110127
  Receipt Date: 20110126
  Transmission Date: 20110831
  Serious: Yes (Other)
  Sender: FDA-Public Use
  Company Number: US-ABBOTT-11P-163-0700315-00

PATIENT
  Sex: Female
  Weight: 103.06 kg

DRUGS (3)
  1. HUMIRA [Suspect]
     Indication: RHEUMATOID ARTHRITIS
     Route: 058
     Dates: start: 20091001
  2. HUMIRA [Suspect]
     Route: 058
     Dates: start: 20090701, end: 20091001
  3. LUMIGAN [Concomitant]
     Indication: GLAUCOMA
     Dosage: 1OS HS
     Route: 047

REACTIONS (7)
  - VISUAL IMPAIRMENT [None]
  - EYE PRURITUS [None]
  - RETINAL TEAR [None]
  - HEADACHE [None]
  - VITREOUS FLOATERS [None]
  - PAIN [None]
  - OCULAR HYPERAEMIA [None]
